FAERS Safety Report 14219795 (Version 2)
Quarter: 2018Q1

REPORT INFORMATION
  Report Type: Spontaneous
  Country: FR (occurrence: FR)
  Receive Date: 20171123
  Receipt Date: 20180115
  Transmission Date: 20180508
  Serious: Yes (Hospitalization, Other)
  Sender: FDA-Public Use
  Company Number: FR-ASTRAZENECA-2017SE54034

PATIENT
  Age: 730 Month
  Sex: Female

DRUGS (6)
  1. LYNPARZA [Suspect]
     Active Substance: OLAPARIB
     Indication: OVARIAN CANCER
     Dosage: 8 CAPSULES A DAY, IN TWO INTAKES
     Route: 048
     Dates: start: 20170220, end: 20170306
  2. LYNPARZA [Suspect]
     Active Substance: OLAPARIB
     Indication: FALLOPIAN TUBE CANCER METASTATIC
     Dosage: 100 MG IN THE MORNING AND 100 MG IN THE EVENING (I.E. 4 CAPSULES A DAY)
     Route: 048
     Dates: start: 20170306, end: 20170320
  3. LYNPARZA [Suspect]
     Active Substance: OLAPARIB
     Indication: FALLOPIAN TUBE CANCER METASTATIC
     Dosage: 8 CAPSULES A DAY, IN TWO INTAKES
     Route: 048
     Dates: start: 20170220, end: 20170306
  4. LYNPARZA [Suspect]
     Active Substance: OLAPARIB
     Indication: OVARIAN CANCER
     Dosage: 100 MG IN THE MORNING AND 100 MG IN THE EVENING (I.E. 4 CAPSULES A DAY)
     Route: 048
     Dates: start: 20170306, end: 20170320
  5. LYNPARZA [Suspect]
     Active Substance: OLAPARIB
     Indication: OVARIAN CANCER
     Dosage: 8 CAPSULES TWICE A DAY, IN THE MORNING AND IN THE EVENING
     Route: 048
     Dates: start: 20160118, end: 20170220
  6. LYNPARZA [Suspect]
     Active Substance: OLAPARIB
     Indication: FALLOPIAN TUBE CANCER METASTATIC
     Dosage: 8 CAPSULES TWICE A DAY, IN THE MORNING AND IN THE EVENING
     Route: 048
     Dates: start: 20160118, end: 20170220

REACTIONS (4)
  - Anaemia [Not Recovered/Not Resolved]
  - Myelodysplastic syndrome [Not Recovered/Not Resolved]
  - Acute leukaemia [Not Recovered/Not Resolved]
  - Neutropenia [Not Recovered/Not Resolved]

NARRATIVE: CASE EVENT DATE: 201701
